FAERS Safety Report 4849714-X (Version None)
Quarter: 2005Q4

REPORT INFORMATION
  Report Type: 
  Country: None (occurrence: None)
  Receive Date: 20051115
  Receipt Date: 20050829
  Transmission Date: 20060501
  Serious: No
  Sender: FDA-Public Use
  Company Number: S05-USA-04126-01

PATIENT
  Age: 78 Year
  Sex: Male

DRUGS (3)
  1. NAMENDA [Suspect]
     Dosage: 5 MG QD PO
     Route: 048
     Dates: start: 20050822, end: 20050828
  2. NAMENDA [Suspect]
     Dosage: 5 MG BID PO
     Route: 048
     Dates: start: 20050829
  3. MULTIPLE MEDICATIONS (NOS) [Concomitant]

REACTIONS (3)
  - MUSCLE TIGHTNESS [None]
  - SOMNOLENCE [None]
  - VISION BLURRED [None]
